FAERS Safety Report 8520786 (Version 3)
Quarter: 2014Q1

REPORT INFORMATION
  Report Type: Spontaneous
  Country: US (occurrence: US)
  Receive Date: 20120419
  Receipt Date: 20140312
  Transmission Date: 20141002
  Serious: No
  Sender: FDA-Public Use
  Company Number: US-ASTRAZENECA-2011SE52240

PATIENT
  Age: 47 Year
  Sex: Female

DRUGS (2)
  1. NEXIUM [Suspect]
     Indication: OESOPHAGEAL PAIN
     Route: 048
     Dates: end: 201401
  2. NEXIUM [Suspect]
     Indication: VOMITING
     Route: 048
     Dates: end: 201401

REACTIONS (9)
  - Aphagia [Unknown]
  - Pain [Unknown]
  - Regurgitation [Unknown]
  - Gastrooesophageal reflux disease [Unknown]
  - Oesophageal pain [Unknown]
  - Malaise [Unknown]
  - Vomiting [Unknown]
  - Drug dose omission [Unknown]
  - Off label use [Unknown]
